FAERS Safety Report 6258574-4 (Version None)
Quarter: 2009Q3

REPORT INFORMATION
  Report Type: 
  Country: None (occurrence: None)
  Receive Date: 20090707
  Receipt Date: 20090630
  Transmission Date: 20100115
  Serious: Yes (Other)
  Sender: FDA-Public Use
  Company Number: BR-ROCHE-641287

PATIENT
  Sex: Female
  Weight: 80 kg

DRUGS (5)
  1. CLONAZEPAM [Suspect]
     Indication: HEADACHE
     Dosage: OTHER INDICATION: DIZZINESS
     Route: 048
     Dates: start: 19750101, end: 20080101
  2. CLONAZEPAM [Suspect]
     Route: 048
     Dates: start: 20090101
  3. GINKGO BILOBA [Concomitant]
     Dosage: DOSE: 80 MG
     Route: 048
  4. LABIRIN [Concomitant]
     Dosage: DOSE: 16 MG
     Route: 048
  5. CINNARIZINE [Concomitant]
     Dosage: DOSE: 75 MG
     Route: 048

REACTIONS (2)
  - GLAUCOMA [None]
  - LABYRINTHITIS [None]
